FAERS Safety Report 7467147-7 (Version None)
Quarter: 2011Q2

REPORT INFORMATION
  Report Type: 
  Country: None (occurrence: None)
  Receive Date: 20110509
  Receipt Date: 20101025
  Transmission Date: 20111010
  Serious: No
  Sender: FDA-Public Use
  Company Number: US-ALEXION-A201001354

PATIENT
  Sex: Female

DRUGS (2)
  1. SOLIRIS [Suspect]
     Indication: PAROXYSMAL NOCTURNAL HAEMOGLOBINURIA
     Dosage: UNK
     Route: 042
  2. INFLUENZA VACCINE [Suspect]
     Indication: IMMUNISATION
     Dosage: UNK
     Dates: start: 20101011, end: 20101011

REACTIONS (7)
  - HAEMOGLOBIN DECREASED [None]
  - CHILLS [None]
  - PYREXIA [None]
  - MUSCLE STRAIN [None]
  - CYSTITIS [None]
  - RENAL IMPAIRMENT [None]
  - BLOOD CREATININE INCREASED [None]
